FAERS Safety Report 10077727 (Version 2)
Quarter: 2014Q2

REPORT INFORMATION
  Report Type: Spontaneous
  Country: US (occurrence: US)
  Receive Date: 20140414
  Receipt Date: 20140501
  Transmission Date: 20141212
  Serious: Yes (Other)
  Sender: FDA-Public Use
  Company Number: US-BMSGILMSD-2014-0099274

PATIENT
  Age: 44 Year
  Sex: Male
  Weight: 92.52 kg

DRUGS (7)
  1. ATRIPLA [Suspect]
     Indication: HIV INFECTION
     Dosage: 1 DF, UNK
     Route: 048
     Dates: start: 2007
  2. ASA [Concomitant]
  3. PROTONIX [Concomitant]
  4. LIPITOR [Concomitant]
  5. NIACIN [Concomitant]
  6. EFFEXOR [Concomitant]
  7. ATIVAN [Concomitant]

REACTIONS (3)
  - Myocardial infarction [Unknown]
  - Myocardial infarction [Unknown]
  - Coronary artery occlusion [Unknown]
